FAERS Safety Report 24994826 (Version 1)
Quarter: 2025Q1

REPORT INFORMATION
  Report Type: Spontaneous
  Country: US (occurrence: None)
  Receive Date: 20250220
  Receipt Date: 20250220
  Transmission Date: 20250408
  Serious: Yes (Other)
  Sender: FDA-CTU
  Company Number: None

PATIENT
  Age: 34 Year
  Sex: Male
  Weight: 88.2 kg

DRUGS (4)
  1. SUBOXONE [Suspect]
     Active Substance: BUPRENORPHINE HYDROCHLORIDE\NALOXONE HYDROCHLORIDE
     Indication: Drug use disorder
     Dosage: FREQUENCY : DAILY;?
     Route: 060
     Dates: start: 20250207, end: 20250213
  2. DEPAKOTE [Concomitant]
     Active Substance: DIVALPROEX SODIUM
     Dates: start: 20250108
  3. PROLIXIN [Concomitant]
     Active Substance: FLUPHENAZINE HYDROCHLORIDE
     Dates: start: 20141227
  4. GLYCOPYRROLATE [Concomitant]
     Active Substance: GLYCOPYRROLATE
     Dates: start: 20250131

REACTIONS (3)
  - Delusion of grandeur [None]
  - Condition aggravated [None]
  - Agitation [None]

NARRATIVE: CASE EVENT DATE: 20250212
